FAERS Safety Report 21265824 (Version 2)
Quarter: 2022Q3

REPORT INFORMATION
  Report Type: Spontaneous
  Country: US (occurrence: US)
  Receive Date: 20220829
  Receipt Date: 20220922
  Transmission Date: 20221027
  Serious: Yes (Life-Threatening, Hospitalization, Other)
  Sender: FDA-Public Use
  Company Number: US-LUPIN PHARMACEUTICALS INC.-2022-10607

PATIENT
  Sex: Male
  Weight: 137 kg

DRUGS (1)
  1. LISINOPRIL [Suspect]
     Active Substance: LISINOPRIL
     Indication: Hypertension
     Dosage: 1 DOSAGE FORM, QD
     Route: 048
     Dates: end: 20220620

REACTIONS (8)
  - Near death experience [Recovering/Resolving]
  - Pneumonia [Recovering/Resolving]
  - Swollen tongue [Recovering/Resolving]
  - Choking [Recovering/Resolving]
  - Speech disorder [Recovering/Resolving]
  - Gait inability [Recovering/Resolving]
  - Limb discomfort [Recovering/Resolving]
  - Anal incontinence [Recovering/Resolving]
